FAERS Safety Report 6235052-X (Version None)
Quarter: 2009Q2

REPORT INFORMATION
  Report Type: 
  Country: None (occurrence: None)
  Receive Date: 20090618
  Receipt Date: 20090609
  Transmission Date: 20091009
  Serious: Yes (Hospitalization, Disabling)
  Sender: FDA-Public Use
  Company Number: US-WYE-H08715409

PATIENT
  Sex: Female

DRUGS (2)
  1. EFFEXOR [Suspect]
     Dosage: UNKNOWN
     Route: 048
     Dates: end: 20081201
  2. EFFEXOR [Suspect]
     Dosage: ^WEANING OFF^
     Route: 048
     Dates: start: 20081201, end: 20090301

REACTIONS (9)
  - DEPRESSION [None]
  - DISTURBANCE IN ATTENTION [None]
  - DRUG WITHDRAWAL SYNDROME [None]
  - EMOTIONAL DISORDER [None]
  - FATIGUE [None]
  - MALAISE [None]
  - NAUSEA [None]
  - PAIN [None]
  - PARAESTHESIA [None]
